FAERS Safety Report 5157745-8 (Version None)
Quarter: 2006Q4

REPORT INFORMATION
  Report Type: 
  Country: None (occurrence: None)
  Receive Date: 20061127
  Receipt Date: 20060406
  Transmission Date: 20070319
  Serious: No
  Sender: FDA-Public Use
  Company Number: 2006GB00590

PATIENT
  Age: 75 Year
  Sex: Female

DRUGS (7)
  1. OMEPRAZOLE [Suspect]
     Indication: GASTRITIS
     Dosage: REDUCED TO 10MG
     Route: 048
     Dates: start: 19960101, end: 20010101
  2. OMEPRAZOLE [Suspect]
     Dosage: REDUCED FROM 20MG
     Route: 048
     Dates: start: 20010101
  3. FERROUS SULFATE TAB [Concomitant]
     Route: 048
  4. ACETAMINOPHEN [Concomitant]
     Dosage: AS NEEDED
     Route: 048
  5. QUININE SULFATE [Concomitant]
     Route: 048
  6. SENNA [Concomitant]
     Dosage: TAKE ONE OR TWO TABLETS
     Route: 048
  7. SOLIFENACIN [Concomitant]
     Route: 048

REACTIONS (5)
  - BURNING SENSATION [None]
  - DRY SKIN [None]
  - ILL-DEFINED DISORDER [None]
  - PARAESTHESIA [None]
  - SKIN EXFOLIATION [None]
